FAERS Safety Report 7786598-4 (Version None)
Quarter: 2011Q3

REPORT INFORMATION
  Report Type: 
  Country: None (occurrence: None)
  Receive Date: 20110929
  Receipt Date: 20110919
  Transmission Date: 20111222
  Serious: Yes (Other)
  Sender: FDA-Public Use
  Company Number: CA-ELI_LILLY_AND_COMPANY-CA201109005126

PATIENT
  Sex: Male

DRUGS (3)
  1. CLOZAPINE [Concomitant]
  2. ZYPREXA [Suspect]
     Dosage: 5 MG, QD
  3. ZYPREXA [Suspect]
     Dosage: 2.5 MG, QD

REACTIONS (5)
  - CONVULSION [None]
  - HYPERGLYCAEMIA [None]
  - TOOTH REPAIR [None]
  - SHOCK [None]
  - DIABETES MELLITUS [None]
